FAERS Safety Report 8453624-9 (Version None)
Quarter: 2012Q2

REPORT INFORMATION
  Report Type: 
  Country: None (occurrence: None)
  Receive Date: 20120620
  Receipt Date: 20120613
  Transmission Date: 20120825
  Serious: Yes (Hospitalization, Other)
  Sender: FDA-Public Use
  Company Number: US-MERCK-1109USA01912

PATIENT
  Age: 66 Year
  Sex: Female
  Weight: 62 kg

DRUGS (7)
  1. FOSAMAX [Suspect]
     Route: 048
     Dates: start: 20090801, end: 20100630
  2. FOSAMAX [Suspect]
     Route: 048
     Dates: start: 20040628, end: 20080418
  3. LIPITOR [Concomitant]
     Route: 065
  4. FOSAMAX PLUS D [Suspect]
     Indication: OSTEOPOROSIS
     Route: 048
     Dates: start: 20061115, end: 20090526
  5. CETIRIZINE HCL [Concomitant]
     Indication: RHINITIS ALLERGIC
     Route: 065
  6. FOSAMAX [Suspect]
     Indication: OSTEOPOROSIS
     Route: 048
     Dates: start: 19980409, end: 20040504
  7. FOSAMAX [Suspect]
     Route: 048
     Dates: start: 20071101

REACTIONS (57)
  - CORONARY ARTERY DISEASE [None]
  - COAGULOPATHY [None]
  - FALL [None]
  - AORTIC ARTERIOSCLEROSIS [None]
  - CEREBRAL ARTERIOSCLEROSIS [None]
  - CERVICAL SPINAL STENOSIS [None]
  - GOITRE [None]
  - MITRAL VALVE SCLEROSIS [None]
  - COUGH [None]
  - GLAUCOMA [None]
  - BUNDLE BRANCH BLOCK RIGHT [None]
  - MITRAL VALVE INCOMPETENCE [None]
  - OESTROGEN DEFICIENCY [None]
  - DYSPEPSIA [None]
  - HEART SOUNDS ABNORMAL [None]
  - BREAST CANCER [None]
  - CORONARY ARTERY STENOSIS [None]
  - INTERVERTEBRAL DISC DEGENERATION [None]
  - LEFT VENTRICULAR HYPERTROPHY [None]
  - CERUMEN IMPACTION [None]
  - ATAXIA [None]
  - ANAEMIA POSTOPERATIVE [None]
  - ANGINA UNSTABLE [None]
  - WOUND HAEMORRHAGE [None]
  - HEAD INJURY [None]
  - COLONIC POLYP [None]
  - HYPERTENSIVE HEART DISEASE [None]
  - CONSTIPATION [None]
  - POST-TRAUMATIC EPILEPSY [None]
  - ARTHRALGIA [None]
  - OSTEOARTHRITIS [None]
  - OSTEOPENIA [None]
  - FEMORAL NECK FRACTURE [None]
  - THYROID NEOPLASM [None]
  - RECTAL HAEMORRHAGE [None]
  - MENTAL STATUS CHANGES [None]
  - KNEE DEFORMITY [None]
  - AORTIC VALVE INCOMPETENCE [None]
  - BLOOD CHOLESTEROL INCREASED [None]
  - TRICUSPID VALVE INCOMPETENCE [None]
  - SPINAL OSTEOARTHRITIS [None]
  - ARTHROPATHY [None]
  - ESSENTIAL HYPERTENSION [None]
  - FEMUR FRACTURE [None]
  - HIP FRACTURE [None]
  - HYPOTENSION [None]
  - AORTIC VALVE SCLEROSIS [None]
  - CARDIAC MURMUR [None]
  - STRESS URINARY INCONTINENCE [None]
  - GLUCOSE TOLERANCE IMPAIRED [None]
  - BACTERIAL PYELONEPHRITIS [None]
  - OPEN WOUND [None]
  - SLEEP APNOEA SYNDROME [None]
  - POLLAKIURIA [None]
  - OVARIAN FAILURE [None]
  - GASTROOESOPHAGEAL REFLUX DISEASE [None]
  - CHEST PAIN [None]
